FAERS Safety Report 14566424 (Version 2)
Quarter: 2018Q1

REPORT INFORMATION
  Report Type: Spontaneous
  Country: IT (occurrence: IT)
  Receive Date: 20180223
  Receipt Date: 20180321
  Transmission Date: 20180509
  Serious: Yes (Other)
  Sender: FDA-Public Use
  Company Number: IT-AMGEN-ITASP2018024506

PATIENT
  Age: 47 Year
  Sex: Female

DRUGS (15)
  1. PANITUMUMAB [Suspect]
     Active Substance: PANITUMUMAB
     Indication: SMALL INTESTINE CARCINOMA
     Dosage: UNK (REDUCED DOSAGE)
     Route: 042
  2. FOLINIC ACID [Concomitant]
     Active Substance: LEUCOVORIN
     Indication: SMALL INTESTINE ADENOCARCINOMA
     Dosage: UNK
     Dates: start: 201603, end: 201610
  3. OXALIPLATIN. [Concomitant]
     Active Substance: OXALIPLATIN
     Indication: SMALL INTESTINE ADENOCARCINOMA
     Dosage: UNK
     Dates: start: 201603, end: 201610
  4. PANITUMUMAB [Suspect]
     Active Substance: PANITUMUMAB
     Indication: SMALL INTESTINE ADENOCARCINOMA
     Dosage: UNK
     Route: 042
     Dates: start: 2016
  5. 5-FU [Concomitant]
     Active Substance: FLUOROURACIL
     Indication: SMALL INTESTINE ADENOCARCINOMA
     Dosage: UNK
     Dates: start: 201603
  6. CAPECITABINE. [Concomitant]
     Active Substance: CAPECITABINE
     Indication: SMALL INTESTINE CARCINOMA
  7. CAPECITABINE. [Concomitant]
     Active Substance: CAPECITABINE
     Indication: METASTASES TO LYMPH NODES
  8. 5-FU [Concomitant]
     Active Substance: FLUOROURACIL
     Indication: METASTASES TO LYMPH NODES
  9. CAPECITABINE. [Concomitant]
     Active Substance: CAPECITABINE
     Indication: SMALL INTESTINE ADENOCARCINOMA
     Dosage: UNK (625 MG/MQ BID DIE CONTINOUSLY)
     Dates: start: 201603
  10. 5-FU [Concomitant]
     Active Substance: FLUOROURACIL
     Indication: SMALL INTESTINE CARCINOMA
  11. PANITUMUMAB [Suspect]
     Active Substance: PANITUMUMAB
     Indication: METASTASES TO LYMPH NODES
  12. FOLINIC ACID [Concomitant]
     Active Substance: LEUCOVORIN
     Indication: SMALL INTESTINE CARCINOMA
  13. FOLINIC ACID [Concomitant]
     Active Substance: LEUCOVORIN
     Indication: METASTASES TO LYMPH NODES
  14. OXALIPLATIN. [Concomitant]
     Active Substance: OXALIPLATIN
     Indication: SMALL INTESTINE CARCINOMA
  15. OXALIPLATIN. [Concomitant]
     Active Substance: OXALIPLATIN
     Indication: METASTASES TO LYMPH NODES

REACTIONS (5)
  - Gastrointestinal toxicity [Unknown]
  - Mucosal inflammation [Unknown]
  - Rash follicular [Unknown]
  - Off label use [Unknown]
  - Dermatitis acneiform [Recovering/Resolving]

NARRATIVE: CASE EVENT DATE: 2016
